FAERS Safety Report 23433323 (Version 1)
Quarter: 2024Q1

REPORT INFORMATION
  Report Type: Spontaneous
  Country: US (occurrence: US)
  Receive Date: 20240123
  Receipt Date: 20240123
  Transmission Date: 20240409
  Serious: No
  Sender: FDA-Public Use
  Company Number: US-PFIZER INC-202400020783

PATIENT
  Age: 48 Year
  Sex: Female

DRUGS (9)
  1. IBRANCE [Suspect]
     Active Substance: PALBOCICLIB
     Dosage: DAILY FOR 7 DAYS, THEN TAKE 7 DAYS OFF
     Route: 048
     Dates: start: 20200102
  2. KELP [MACROCYSTIS PYRIFERA] [Concomitant]
  3. MELATONIN [Concomitant]
     Active Substance: MELATONIN
  4. OMEGA-3 FATTY ACIDS [Concomitant]
     Active Substance: OMEGA-3 FATTY ACIDS
  5. VITAMIN D2 [Concomitant]
     Active Substance: ERGOCALCIFEROL
  6. METFORMIN [Concomitant]
     Active Substance: METFORMIN HYDROCHLORIDE
  7. ARMOUR THYROID [Concomitant]
     Active Substance: THYROID, PORCINE
  8. ANASTROZOLE [Concomitant]
     Active Substance: ANASTROZOLE
  9. MUPIROCIN [Concomitant]
     Active Substance: MUPIROCIN

REACTIONS (2)
  - COVID-19 [Recovered/Resolved]
  - Off label use [Unknown]
